FAERS Safety Report 25348535 (Version 1)
Quarter: 2025Q2

REPORT INFORMATION
  Report Type: Spontaneous
  Country: US (occurrence: None)
  Receive Date: 20250520
  Receipt Date: 20250520
  Transmission Date: 20250716
  Serious: Yes (Life-Threatening, Hospitalization)
  Sender: FDA-CTU
  Company Number: None

PATIENT
  Age: 55 Year
  Sex: Female
  Weight: 93.44 kg

DRUGS (1)
  1. ZEPBOUND [Suspect]
     Active Substance: TIRZEPATIDE
     Dates: start: 20241001, end: 20250512

REACTIONS (4)
  - Weight decreased [None]
  - Appendicitis perforated [None]
  - Ileus [None]
  - Gastrointestinal hypermotility [None]

NARRATIVE: CASE EVENT DATE: 20250512
